FAERS Safety Report 13031784 (Version 1)
Quarter: 2016Q4

REPORT INFORMATION
  Report Type: Report from Study
  Country: None (occurrence: BR)
  Receive Date: 20161215
  Receipt Date: 20161215
  Transmission Date: 20170207
  Serious: Yes (Disabling, Other)
  Sender: FDA-Public Use
  Company Number: BR-ABBVIE-16K-020-1805292-00

PATIENT
  Age: 33 Year
  Sex: Male
  Weight: 76 kg

DRUGS (6)
  1. HUMIRA [Suspect]
     Active Substance: ADALIMUMAB
     Dosage: WEEK 1
     Route: 058
  2. HUMIRA [Suspect]
     Active Substance: ADALIMUMAB
     Indication: CROHN^S DISEASE
     Dosage: WEEK 0
     Route: 058
     Dates: start: 20160812, end: 20160812
  3. NOREPINEPHRINE [Suspect]
     Active Substance: NOREPINEPHRINE\NOREPINEPHRINE BITARTRATE
     Indication: PRODUCT USED FOR UNKNOWN INDICATION
     Route: 065
     Dates: start: 20161026, end: 2016
  4. HUMIRA [Suspect]
     Active Substance: ADALIMUMAB
     Route: 058
     Dates: end: 201609
  5. AZATHIOPRINE. [Concomitant]
     Active Substance: AZATHIOPRINE
     Indication: CROHN^S DISEASE
     Route: 048
     Dates: start: 201610
  6. HUMIRA [Suspect]
     Active Substance: ADALIMUMAB
     Dosage: WEEK 2
     Route: 058

REACTIONS (12)
  - Anxiety [Unknown]
  - Coma [Recovered/Resolved]
  - Mineral deficiency [Recovering/Resolving]
  - Necrotising colitis [Recovering/Resolving]
  - Extravasation [Recovered/Resolved]
  - Mobility decreased [Recovering/Resolving]
  - Aphasia [Recovering/Resolving]
  - Intestinal obstruction [Recovering/Resolving]
  - Suture rupture [Recovered/Resolved]
  - Multi-vitamin deficiency [Recovering/Resolving]
  - Blood bilirubin decreased [Recovering/Resolving]
  - Gastrointestinal anastomotic leak [Recovered/Resolved]

NARRATIVE: CASE EVENT DATE: 2015
